FAERS Safety Report 16442154 (Version 1)
Quarter: 2019Q2

REPORT INFORMATION
  Report Type: Spontaneous
  Country: US (occurrence: US)
  Receive Date: 20190617
  Receipt Date: 20190617
  Transmission Date: 20190711
  Serious: Yes (Hospitalization)
  Sender: FDA-Public Use
  Company Number: US-CELGENEUS-USA-20190510114

PATIENT
  Age: 63 Year
  Sex: Male

DRUGS (10)
  1. REVLIMID [Suspect]
     Active Substance: LENALIDOMIDE
     Indication: PLASMA CELL MYELOMA
     Dosage: 5 MILLIGRAM
     Route: 048
     Dates: start: 20190411
  2. REVLIMID [Suspect]
     Active Substance: LENALIDOMIDE
     Dosage: 2.5 MILLIGRAM
     Route: 048
     Dates: start: 201905, end: 20190605
  3. GABAPENTIN. [Concomitant]
     Active Substance: GABAPENTIN
     Indication: ROUTINE HEALTH MAINTENANCE
  4. GLYBURIDE. [Concomitant]
     Active Substance: GLYBURIDE
     Indication: DIABETES MELLITUS
     Dosage: 10 MILLIGRAM
     Route: 048
     Dates: end: 20190605
  5. BUMEX [Concomitant]
     Active Substance: BUMETANIDE
     Indication: OEDEMA
     Dosage: 2 MILLIGRAM
     Route: 048
     Dates: end: 20190605
  6. GABAPENTIN. [Concomitant]
     Active Substance: GABAPENTIN
     Indication: NEUROPATHY PERIPHERAL
     Dosage: 600 MILLIGRAM
     Route: 048
     Dates: end: 20190605
  7. GLYBURIDE. [Concomitant]
     Active Substance: GLYBURIDE
     Indication: ROUTINE HEALTH MAINTENANCE
  8. CARVEDILOL. [Concomitant]
     Active Substance: CARVEDILOL
     Indication: BLOOD PRESSURE MEASUREMENT
     Dosage: 6.25 MILLIGRAM
     Route: 048
     Dates: end: 20190605
  9. CARVEDILOL. [Concomitant]
     Active Substance: CARVEDILOL
     Indication: ROUTINE HEALTH MAINTENANCE
  10. CYMBALTA [Concomitant]
     Active Substance: DULOXETINE HYDROCHLORIDE
     Indication: NEUROPATHY PERIPHERAL
     Dosage: 30 MILLIGRAM
     Route: 048
     Dates: end: 20190605

REACTIONS (3)
  - Acute kidney injury [Unknown]
  - Cellulitis [Recovered/Resolved]
  - Anaemia [Unknown]

NARRATIVE: CASE EVENT DATE: 20190510
